FAERS Safety Report 9250818 (Version 1)
Quarter: 2013Q1

REPORT INFORMATION
  Report Type: Spontaneous
  Country: US (occurrence: None)
  Receive Date: 20130305
  Receipt Date: 20130305
  Transmission Date: 20140127
  Serious: Yes (Hospitalization, Other)
  Sender: FDA-Public Use
  Company Number: 163-21880-12100244

PATIENT
  Age: 64 Year
  Sex: Female
  Weight: 99.79 kg

DRUGS (14)
  1. REVLIMID [Suspect]
     Indication: PLASMA CELL MYELOMA
     Dosage: 25 MG, 1 IN 1 D, PO
     Route: 048
     Dates: start: 20120908
  2. DEXAMETHASONE (DEXAMETHASONE) 4 MILLIGRAM MILLIGRAM, UNKNOWN) [Concomitant]
  3. SENOKOT (SENNA FRUIT) (UNKNOWN) [Concomitant]
  4. HYDROMORPHONE (HYDROMORPHONE) (UNKNOWN) (HYDROMORPHONE) [Concomitant]
  5. LISINOPRIL (LISINOPRIL) (UNKNOWN) [Concomitant]
  6. PHENYTOIN SODIUM (PHENYTOIN SODIUM) (UNKNOWN) [Concomitant]
  7. CALCIUM CITRATE (CALCIUM CITRATE) (UNKNOWN) [Concomitant]
  8. BISOPROL (BISOPROLOL FUMARATE) (UNKNOWN) [Concomitant]
  9. VELCADE [Concomitant]
  10. LEVOTHYROXINE (LEVOTHYROXINE) (UNKNOWN) [Concomitant]
  11. LORAZEPAM (LORAZEPAM) 2 MILLIGRAM, TABLETS) [Concomitant]
  12. OXYCONTIN (OXYCODONE HYDROCHLORIDE) (UNKNOWN) [Concomitant]
  13. PROMETHASONE HCL (PROMETHAZINE HYDROCHLORIDE) (UNKNOWN) [Concomitant]
  14. POTASSIUM (POTASSIUM) (TABLETS) [Concomitant]

REACTIONS (6)
  - Blood potassium decreased [None]
  - Constipation [None]
  - Diarrhoea [None]
  - Chills [None]
  - Local swelling [None]
  - Nausea [None]
